FAERS Safety Report 22803778 (Version 2)
Quarter: 2024Q1

REPORT INFORMATION
  Report Type: Spontaneous
  Country: IT (occurrence: IT)
  Receive Date: 20230809
  Receipt Date: 20240313
  Transmission Date: 20240409
  Serious: Yes (Other)
  Sender: FDA-Public Use
  Company Number: IT-TEVA-2023-IT-2908704

PATIENT
  Age: 30 Year
  Sex: Female

DRUGS (3)
  1. KEYTRUDA [Suspect]
     Active Substance: PEMBROLIZUMAB
     Indication: Triple negative breast cancer
     Dosage: 200MG, EVERY 3 WEEKS
     Route: 042
     Dates: start: 20230607, end: 20230607
  2. CARBOPLATIN [Suspect]
     Active Substance: CARBOPLATIN
     Indication: Triple negative breast cancer
     Dosage: 15MG/AUC AS STRENGTH
     Route: 042
     Dates: start: 20230607, end: 20230621
  3. PACLITAXEL [Suspect]
     Active Substance: PACLITAXEL
     Indication: Triple negative breast cancer
     Dosage: 124.8 MILLIGRAM DAILY; 80MG/SQ.M AS STRENGTH, AS STRENGTH, WEEKLY, 124.8MG AS TOTAL DAILY DOSE
     Route: 042
     Dates: start: 20230607, end: 20230621

REACTIONS (1)
  - Neutropenia [Recovered/Resolved]

NARRATIVE: CASE EVENT DATE: 20230628
